FAERS Safety Report 5213652-3 (Version None)
Quarter: 2007Q1

REPORT INFORMATION
  Report Type: 
  Country: None (occurrence: None)
  Receive Date: 20070119
  Receipt Date: 20070108
  Transmission Date: 20070707
  Serious: Yes (Hospitalization)
  Sender: FDA-Public Use
  Company Number: FR-PFIZER INC-2007003826

PATIENT
  Sex: Female

DRUGS (4)
  1. ATARAX [Suspect]
     Dosage: DAILY DOSE:50MG
     Route: 048
  2. GINKOR [Suspect]
     Indication: RASH
     Dosage: TEXT:1 DF
     Route: 048
  3. VENLAFAXINE HCL [Suspect]
     Dosage: DAILY DOSE:75MG
     Route: 048
  4. PRAVASTATIN SODIUM [Suspect]
     Dosage: DAILY DOSE:20MG
     Route: 048

REACTIONS (2)
  - LICHENOID KERATOSIS [None]
  - PRURITUS [None]
